FAERS Safety Report 13577818 (Version 2)
Quarter: 2017Q4

REPORT INFORMATION
  Report Type: Spontaneous
  Country: FR (occurrence: FR)
  Receive Date: 20170524
  Receipt Date: 20171114
  Transmission Date: 20180320
  Serious: Yes (Other)
  Sender: FDA-Public Use
  Company Number: FR-ASTRAZENECA-2017SE54284

PATIENT
  Age: 30218 Day
  Sex: Female

DRUGS (2)
  1. IBRANCE [Suspect]
     Active Substance: PALBOCICLIB
     Indication: BREAST CANCER METASTATIC
     Dosage: 75 MG DURING 21 DAYS TO 28 DAYS
     Route: 048
     Dates: start: 20161029, end: 20170421
  2. FASLODEX [Suspect]
     Active Substance: FULVESTRANT
     Indication: BREAST CANCER METASTATIC
     Dosage: D1-D15-D28, THEN ONCE A MONTH,
     Route: 030
     Dates: start: 20161029

REACTIONS (4)
  - Balance disorder [Unknown]
  - Dysgeusia [Recovering/Resolving]
  - Deafness neurosensory [Not Recovered/Not Resolved]
  - Off label use [Recovered/Resolved]

NARRATIVE: CASE EVENT DATE: 20161029
